FAERS Safety Report 11704448 (Version 1)
Quarter: 2015Q4

REPORT INFORMATION
  Report Type: Spontaneous
  Country: US (occurrence: US)
  Receive Date: 20151106
  Receipt Date: 20151106
  Transmission Date: 20160304
  Serious: No
  Sender: FDA-Public Use
  Company Number: US-PFIZER INC-2015351024

PATIENT
  Age: 70 Year
  Sex: Female

DRUGS (2)
  1. ADVIL [Suspect]
     Active Substance: IBUPROFEN
     Indication: TOOTHACHE
     Dosage: UNK
  2. ADVIL [Suspect]
     Active Substance: IBUPROFEN
     Indication: HEADACHE

REACTIONS (2)
  - Somnolence [Unknown]
  - Drug effect incomplete [Unknown]
